FAERS Safety Report 21657445 (Version 1)
Quarter: 2022Q4

REPORT INFORMATION
  Report Type: Spontaneous
  Country: US (occurrence: US)
  Receive Date: 20221129
  Receipt Date: 20221129
  Transmission Date: 20230112
  Serious: No
  Sender: FDA-Public Use
  Company Number: US-TEVA-2022-US-2826545

PATIENT
  Age: 37 Year
  Sex: Female
  Weight: 62.14 kg

DRUGS (1)
  1. ESTRADIOL [Suspect]
     Active Substance: ESTRADIOL
     Indication: In vitro fertilisation
     Dosage: 6 MILLIGRAM DAILY; STRENGTH: 2MG
     Route: 048

REACTIONS (1)
  - Food allergy [Not Recovered/Not Resolved]
